FAERS Safety Report 5518845-3 (Version None)
Quarter: 2007Q4

REPORT INFORMATION
  Report Type: 
  Country: None (occurrence: None)
  Receive Date: 20071113
  Receipt Date: 20071030
  Transmission Date: 20080405
  Serious: Yes (Hospitalization)
  Sender: FDA-Public Use
  Company Number: 2007EN000112

PATIENT
  Age: 47 Year
  Sex: Male

DRUGS (5)
  1. ABELCET [Suspect]
     Indication: CANDIDIASIS
     Dosage: 400 MG;QD; IV
     Route: 042
  2. ENOXAPARIN SODIUM [Concomitant]
  3. LANSOPRAZOLE [Concomitant]
  4. GENTAMICIN [Concomitant]
  5. LINEZOLID [Concomitant]

REACTIONS (1)
  - INFUSION RELATED REACTION [None]
